FAERS Safety Report 7959448-0 (Version None)
Quarter: 2011Q4

REPORT INFORMATION
  Report Type: 
  Country: None (occurrence: None)
  Receive Date: 20111206
  Receipt Date: 20111130
  Transmission Date: 20120403
  Serious: No
  Sender: FDA-Public Use
  Company Number: US-PFIZER INC-2011296353

PATIENT
  Sex: Female

DRUGS (3)
  1. ZOLOFT [Suspect]
     Dosage: UNK
     Dates: start: 20060613
  2. ZOLOFT [Suspect]
     Dosage: 100 MG, DAILY
  3. MULTI-VITAMINS [Concomitant]
     Dosage: UNK

REACTIONS (1)
  - VOMITING IN PREGNANCY [None]
